FAERS Safety Report 21812893 (Version 2)
Quarter: 2023Q1

REPORT INFORMATION
  Report Type: Spontaneous
  Country: US (occurrence: US)
  Receive Date: 20230103
  Receipt Date: 20230302
  Transmission Date: 20230418
  Serious: Yes (Hospitalization, Other)
  Sender: FDA-Public Use
  Company Number: US-GILEAD-2023-0611419

PATIENT
  Age: 73 Year
  Sex: Male
  Weight: 82.3 kg

DRUGS (27)
  1. TECARTUS [Suspect]
     Active Substance: BREXUCABTAGENE AUTOLEUCEL
     Indication: Mantle cell lymphoma
     Dosage: 68 MAXIMUM OF 2 X 10 ^8 AUTOLOGOUS ANTI CD19 CART T CELLS IN 5% DMSO
     Route: 042
     Dates: start: 20221205, end: 20221205
  2. DIMETHYL SULFOXIDE [Concomitant]
     Active Substance: DIMETHYL SULFOXIDE
     Dosage: UNK
     Dates: start: 20221205, end: 20221205
  3. CYCLOPHOSPHAMIDE [Concomitant]
     Active Substance: CYCLOPHOSPHAMIDE
     Dosage: UNK975 MG IN 48.75 ML
     Route: 042
     Dates: start: 20221130
  4. FLUDARABINE [Concomitant]
     Active Substance: FLUDARABINE PHOSPHATE
     Dosage: 50 MG IN 2 ML
     Route: 042
     Dates: start: 20221130, end: 20221202
  5. FOSAPREPITANT [Concomitant]
     Active Substance: FOSAPREPITANT
  6. CILGAVIMAB\TIXAGEVIMAB [Concomitant]
     Active Substance: CILGAVIMAB\TIXAGEVIMAB
     Dosage: 600 MG IN 6 ML
     Dates: start: 20221118, end: 20221118
  7. POTASSIUM CHLORIDE [Concomitant]
     Active Substance: POTASSIUM CHLORIDE
  8. MAGNESIUM SULFATE [Concomitant]
     Active Substance: MAGNESIUM SULFATE
  9. ALTEPLASE [Concomitant]
     Active Substance: ALTEPLASE
  10. TYLENOL [Concomitant]
     Active Substance: ACETAMINOPHEN
  11. SODIUM CHLORIDE [Concomitant]
     Active Substance: SODIUM CHLORIDE
  12. CYANOCOBALAMIN [Concomitant]
     Active Substance: CYANOCOBALAMIN
  13. ALLOPURINOL [Concomitant]
     Active Substance: ALLOPURINOL
  14. LEVOTHYROXINE [Concomitant]
     Active Substance: LEVOTHYROXINE
  15. FOLIC ACID [Concomitant]
     Active Substance: FOLIC ACID
  16. PANTOPRAZOLE [Concomitant]
     Active Substance: PANTOPRAZOLE
  17. OMEPRAZOLE [Concomitant]
     Active Substance: OMEPRAZOLE
  18. LEVOFLOXACIN [Concomitant]
     Active Substance: LEVOFLOXACIN
  19. IBRUTINIB [Concomitant]
     Active Substance: IBRUTINIB
  20. ACALABRUTINIB [Concomitant]
     Active Substance: ACALABRUTINIB
  21. ERGOCALCIFEROL [Concomitant]
     Active Substance: ERGOCALCIFEROL
  22. OLANZAPINE [Concomitant]
     Active Substance: OLANZAPINE
  23. PROCHLORPERAZINE [Concomitant]
     Active Substance: PROCHLORPERAZINE
  24. DIPHENHYDRAMINE [Concomitant]
     Active Substance: DIPHENHYDRAMINE
  25. MAALOX PLUS [ALGELDRATE;DIMETICONE;MAGNESIUM HYDROXIDE] [Concomitant]
  26. DEXTROMETHORPHAN HYDROBROMIDE\GUAIFENESIN [Concomitant]
     Active Substance: DEXTROMETHORPHAN HYDROBROMIDE\GUAIFENESIN
     Indication: Cough
     Dosage: UNK
     Dates: start: 20221210
  27. PHENERGAN VC W/ CODEINE [Concomitant]
     Active Substance: CODEINE PHOSPHATE\PHENYLEPHRINE HYDROCHLORIDE\PROMETHAZINE HYDROCHLORIDE
     Indication: Cough
     Dosage: UNK
     Dates: start: 20221210

REACTIONS (2)
  - Cytokine release syndrome [Recovered/Resolved]
  - Febrile neutropenia [Unknown]

NARRATIVE: CASE EVENT DATE: 20221201
